FAERS Safety Report 15874834 (Version 1)
Quarter: 2019Q1

REPORT INFORMATION
  Report Type: Other
  Country: US (occurrence: US)
  Receive Date: 20190126
  Receipt Date: 20190126
  Transmission Date: 20190417
  Serious: No
  Sender: FDA-Public Use
  Company Number: US-ACORDA-ACO_152464_2018

PATIENT
  Age: 68 Year
  Sex: Male

DRUGS (2)
  1. AMPYRA [Suspect]
     Active Substance: DALFAMPRIDINE
     Dosage: 10 MG, QD
     Route: 048
     Dates: start: 201807
  2. AMPYRA [Suspect]
     Active Substance: DALFAMPRIDINE
     Indication: PRODUCT USED FOR UNKNOWN INDICATION
     Dosage: 10 MG, Q 12 HRS
     Route: 048

REACTIONS (15)
  - Anxiety [Unknown]
  - Gait disturbance [Unknown]
  - Bradykinesia [Unknown]
  - Fall [Unknown]
  - Inappropriate schedule of product administration [Unknown]
  - Condition aggravated [Unknown]
  - Weight decreased [Unknown]
  - Fatigue [Unknown]
  - Muscle spasms [Unknown]
  - Feeling abnormal [Unknown]
  - Depression [Unknown]
  - Abdominal discomfort [Unknown]
  - Muscular weakness [Unknown]
  - Treatment noncompliance [Unknown]
  - Constipation [Unknown]

NARRATIVE: CASE EVENT DATE: 20180304
